FAERS Safety Report 5091813-4 (Version None)
Quarter: 2006Q3

REPORT INFORMATION
  Report Type: 
  Country: None (occurrence: None)
  Receive Date: 20060829
  Receipt Date: 20060613
  Transmission Date: 20061208
  Serious: No
  Sender: FDA-Public Use
  Company Number: US-BRISTOL-MYERS SQUIBB COMPANY-13410865

PATIENT
  Age: 73 Year
  Sex: Male
  Weight: 92 kg

DRUGS (8)
  1. ERBITUX [Suspect]
     Indication: COLON CANCER METASTATIC
     Route: 042
     Dates: start: 20060101, end: 20060101
  2. IRINOTECAN HCL [Concomitant]
  3. PEPCID [Concomitant]
     Indication: PREMEDICATION
     Route: 042
     Dates: start: 20060101, end: 20060101
  4. ZOFRAN [Concomitant]
     Indication: PREMEDICATION
     Route: 042
     Dates: start: 20060101, end: 20060101
  5. DECADRON [Concomitant]
     Indication: PREMEDICATION
     Route: 042
     Dates: start: 20060101, end: 20060101
  6. COLACE [Concomitant]
  7. LAXATIVES [Concomitant]
  8. MULTI-VITAMIN [Concomitant]

REACTIONS (2)
  - PRURITUS [None]
  - RASH [None]
